FAERS Safety Report 5452950-5 (Version None)
Quarter: 2007Q3

REPORT INFORMATION
  Report Type: 
  Country: None (occurrence: None)
  Receive Date: 20070914
  Receipt Date: 20070823
  Transmission Date: 20080115
  Serious: Yes (Other)
  Sender: FDA-Public Use
  Company Number: US-ASTRAZENECA-2007UW20224

PATIENT
  Age: 71 Year
  Sex: Female
  Weight: 176 kg

DRUGS (5)
  1. ARIMIDEX [Suspect]
     Indication: BREAST CANCER
     Route: 048
     Dates: start: 20050101
  2. INSULIN [Concomitant]
  3. AVANDIA [Concomitant]
  4. ZETIA [Concomitant]
  5. TOPROL-XL [Concomitant]

REACTIONS (10)
  - ALOPECIA [None]
  - ARTHRALGIA [None]
  - BREAST PAIN [None]
  - COUGH [None]
  - DEPRESSION [None]
  - KNEE ARTHROPLASTY [None]
  - MOOD ALTERED [None]
  - OEDEMA PERIPHERAL [None]
  - VULVOVAGINAL DRYNESS [None]
  - WEIGHT INCREASED [None]
